FAERS Safety Report 5722830-6 (Version None)
Quarter: 2008Q2

REPORT INFORMATION
  Report Type: 
  Country: None (occurrence: None)
  Receive Date: 20080429
  Receipt Date: 20080107
  Transmission Date: 20081010
  Serious: No
  Sender: FDA-Public Use
  Company Number: US-ASTRAZENECA-2008UW00493

PATIENT
  Age: 41 Year
  Sex: Male

DRUGS (2)
  1. NEXIUM [Suspect]
     Indication: REFLUX OESOPHAGITIS
     Route: 048
     Dates: start: 20080103
  2. EFFEXOR [Concomitant]

REACTIONS (3)
  - COLD SWEAT [None]
  - ILL-DEFINED DISORDER [None]
  - NERVOUSNESS [None]
